FAERS Safety Report 20605674 (Version 1)
Quarter: 2022Q1

REPORT INFORMATION
  Report Type: Spontaneous
  Country: GB (occurrence: GB)
  Receive Date: 20220317
  Receipt Date: 20220317
  Transmission Date: 20220423
  Serious: Yes (Life-Threatening)
  Sender: FDA-Public Use
  Company Number: GB-MHRA-MED-202203072145561100-8VZY9

PATIENT
  Age: 30 Year
  Sex: Female

DRUGS (2)
  1. ONDANSETRON [Suspect]
     Active Substance: ONDANSETRON
     Indication: Nausea
     Dosage: 4MG/2ML;
     Route: 042
     Dates: start: 20220307, end: 20220307
  2. ONDANSETRON [Suspect]
     Active Substance: ONDANSETRON
     Dosage: DOSE REINTRODUCED
     Route: 042

REACTIONS (2)
  - Maternal exposure during pregnancy [Unknown]
  - Anaphylactic reaction [Recovered/Resolved]

NARRATIVE: CASE EVENT DATE: 20220307
